FAERS Safety Report 20044928 (Version 2)
Quarter: 2022Q1

REPORT INFORMATION
  Report Type: Spontaneous
  Country: US (occurrence: US)
  Receive Date: 20211108
  Receipt Date: 20220111
  Transmission Date: 20220423
  Serious: No
  Sender: FDA-Public Use
  Company Number: US-BoehringerIngelheim-2021-BI-136926

PATIENT
  Age: 58 Year
  Sex: Female

DRUGS (1)
  1. SPIRIVA HANDIHALER [Suspect]
     Active Substance: TIOTROPIUM BROMIDE MONOHYDRATE
     Indication: Alpha-1 antitrypsin deficiency
     Dosage: 1 CAPSULE, INHALE 6-7 TIMES
     Route: 055
     Dates: start: 201801

REACTIONS (4)
  - Off label use [Unknown]
  - Therapy interrupted [Recovered/Resolved]
  - Off label use [Recovered/Resolved]
  - Intentional product use issue [Unknown]

NARRATIVE: CASE EVENT DATE: 20180101
